FAERS Safety Report 10067301 (Version 1)
Quarter: 2014Q2

REPORT INFORMATION
  Report Type: Spontaneous
  Country: US (occurrence: US)
  Receive Date: 20140409
  Receipt Date: 20140409
  Transmission Date: 20141212
  Serious: No
  Sender: FDA-Public Use
  Company Number: US-009507513-1404USA002159

PATIENT
  Sex: Male

DRUGS (3)
  1. ZETIA [Suspect]
     Indication: BLOOD CHOLESTEROL
     Dosage: (1 STANDARD PACKAGE BOTTLE OF 90)10 MG/ ONE TABLET PER DAY AT NIGHT (HS)
     Route: 048
     Dates: start: 2013, end: 20140325
  2. JANUVIA [Concomitant]
     Route: 048
  3. GLIPIZIDE [Concomitant]

REACTIONS (3)
  - Fatigue [Recovering/Resolving]
  - Pain in extremity [Recovering/Resolving]
  - Joint instability [Recovering/Resolving]
